FAERS Safety Report 24164327 (Version 7)
Quarter: 2025Q1

REPORT INFORMATION
  Report Type: Spontaneous
  Country: US (occurrence: US)
  Receive Date: 20240801
  Receipt Date: 20250322
  Transmission Date: 20250409
  Serious: Yes (Disabling, Other)
  Sender: ABBVIE
  Company Number: US-ABBVIE-5862680

PATIENT
  Age: 47 Year
  Sex: Female
  Weight: 54 kg

DRUGS (14)
  1. BOTOX [Suspect]
     Active Substance: ONABOTULINUMTOXINA
     Indication: Migraine
     Dosage: EVERY THREE MONTHS?FORM STRENGTH: 180 UNIT
     Route: 030
     Dates: start: 2009, end: 202406
  2. BOTOX [Suspect]
     Active Substance: ONABOTULINUMTOXINA
     Indication: Migraine
     Dosage: EVERY THREE MONTHS?FORM STRENGTH: 180 UNIT
     Route: 030
     Dates: start: 202406, end: 202406
  3. PLAQUENIL [Concomitant]
     Active Substance: HYDROXYCHLOROQUINE SULFATE
     Indication: Systemic lupus erythematosus
  4. CELEBREX [Concomitant]
     Active Substance: CELECOXIB
     Indication: Systemic lupus erythematosus
  5. CYMBALTA [Concomitant]
     Active Substance: DULOXETINE HYDROCHLORIDE
     Indication: Systemic lupus erythematosus
  6. ZYRTEC [Concomitant]
     Active Substance: CETIRIZINE HYDROCHLORIDE
     Indication: Hypersensitivity
  7. SYNTHROID [Concomitant]
     Active Substance: LEVOTHYROXINE SODIUM
     Indication: Autoimmune thyroiditis
  8. DULOXETINE [Concomitant]
     Active Substance: DULOXETINE
     Indication: Systemic lupus erythematosus
  9. PREDNISONE [Concomitant]
     Active Substance: PREDNISONE
     Indication: Migraine
  10. HIPREX [Concomitant]
     Active Substance: METHENAMINE HIPPURATE
     Indication: Systemic lupus erythematosus
  11. MOBIC [Concomitant]
     Active Substance: MELOXICAM
     Indication: Systemic lupus erythematosus
  12. TESTOSTERONE [Concomitant]
     Active Substance: TESTOSTERONE
     Indication: Hormone therapy
  13. PROPRANOLOL HYDROCHLORIDE [Concomitant]
     Active Substance: PROPRANOLOL HYDROCHLORIDE
     Indication: Migraine
  14. SPIRONOLACTONE [Concomitant]
     Active Substance: SPIRONOLACTONE
     Indication: Acne

REACTIONS (18)
  - Disability [Not Recovered/Not Resolved]
  - Drug ineffective [Not Recovered/Not Resolved]
  - Hypoglycaemia [Recovered/Resolved]
  - Anti-thyroid antibody increased [Not Recovered/Not Resolved]
  - Blood folate decreased [Not Recovered/Not Resolved]
  - Product quality issue [Not Recovered/Not Resolved]
  - Migraine [Not Recovered/Not Resolved]
  - Amnesia [Not Recovered/Not Resolved]
  - Cognitive disorder [Not Recovered/Not Resolved]
  - Blood homocysteine increased [Not Recovered/Not Resolved]
  - Autoimmune thyroiditis [Not Recovered/Not Resolved]
  - Weight decreased [Not Recovered/Not Resolved]
  - Dysarthria [Recovered/Resolved]
  - Loss of consciousness [Recovered/Resolved]
  - Vomiting [Not Recovered/Not Resolved]
  - Autoimmune thyroiditis [Unknown]
  - Illness [Not Recovered/Not Resolved]
  - Malabsorption [Not Recovered/Not Resolved]

NARRATIVE: CASE EVENT DATE: 20240101
